FAERS Safety Report 4787398-X (Version None)
Quarter: 2005Q3

REPORT INFORMATION
  Report Type: 
  Country: None (occurrence: None)
  Receive Date: 20050926
  Receipt Date: 20050531
  Transmission Date: 20060218
  Serious: No
  Sender: FDA-Public Use
  Company Number: 214980

PATIENT
  Age: 49 Year
  Sex: Male

DRUGS (1)
  1. AVASTIN [Suspect]
     Indication: COLORECTAL CANCER METASTATIC
     Dosage: 720 MG, QW2, INTRAVENOUS
     Route: 042
     Dates: start: 20050517

REACTIONS (1)
  - BLOOD PRESSURE INCREASED [None]
